FAERS Safety Report 5256266-1 (Version None)
Quarter: 2007Q1

REPORT INFORMATION
  Report Type: 
  Country: None (occurrence: None)
  Receive Date: 20070302
  Receipt Date: 20070302
  Transmission Date: 20070707
  Serious: No
  Sender: FDA-Public Use
  Company Number: None

PATIENT
  Age: 22 Year
  Sex: Male
  Weight: 74.8435 kg

DRUGS (2)
  1. PAROXETINE HCL [Suspect]
     Indication: POST-TRAUMATIC STRESS DISORDER
     Dosage: 30MG 1 TIMES DAILY PO
     Route: 048
     Dates: start: 20061119, end: 20070220
  2. PAROXETINE HCL [Suspect]
     Indication: SOCIAL PHOBIA
     Dosage: 30MG 1 TIMES DAILY PO
     Route: 048
     Dates: start: 20061119, end: 20070220

REACTIONS (6)
  - CONDITION AGGRAVATED [None]
  - DEPRESSION [None]
  - IMPAIRED WORK ABILITY [None]
  - POST-TRAUMATIC STRESS DISORDER [None]
  - RESTLESSNESS [None]
  - SOCIAL PHOBIA [None]
